FAERS Safety Report 9235964 (Version 2)
Quarter: 2013Q2

REPORT INFORMATION
  Report Type: Spontaneous
  Country: KR (occurrence: KR)
  Receive Date: 20130417
  Receipt Date: 20130503
  Transmission Date: 20140414
  Serious: Yes (Other)
  Sender: FDA-Public Use
  Company Number: KR-ABBOTT-13P-286-1075046-00

PATIENT
  Age: 59 Year
  Sex: Male
  Weight: 70 kg

DRUGS (22)
  1. SEVORANE [Suspect]
     Indication: ANAESTHESIA
     Dosage: 1-2%
     Route: 055
  2. SEVORANE [Suspect]
     Indication: PAROTIDECTOMY
  3. AMLODIPINE [Concomitant]
     Indication: PRODUCT USED FOR UNKNOWN INDICATION
  4. OLMESARTAN [Concomitant]
     Indication: PRODUCT USED FOR UNKNOWN INDICATION
  5. METFORMIN [Concomitant]
     Indication: PRODUCT USED FOR UNKNOWN INDICATION
  6. VILDAGLIPTIN [Concomitant]
     Indication: PRODUCT USED FOR UNKNOWN INDICATION
  7. PITAVASTATIN [Concomitant]
     Indication: PRODUCT USED FOR UNKNOWN INDICATION
  8. CHOLINE ALFOSCERATE [Concomitant]
     Indication: PRODUCT USED FOR UNKNOWN INDICATION
  9. TRIMETAZIDINE [Concomitant]
     Indication: PRODUCT USED FOR UNKNOWN INDICATION
  10. CARBAMAZEPINE [Concomitant]
     Indication: PRODUCT USED FOR UNKNOWN INDICATION
  11. ITOPRIDE [Concomitant]
     Indication: PRODUCT USED FOR UNKNOWN INDICATION
  12. GLYCOPYRROLATE [Concomitant]
     Indication: PRODUCT USED FOR UNKNOWN INDICATION
     Route: 042
  13. MIDAZOLAM [Concomitant]
     Indication: INDUCTION OF ANAESTHESIA
  14. THIOPENTAL SODIUM [Concomitant]
     Indication: INDUCTION OF ANAESTHESIA
     Route: 042
  15. ROCURONIUM [Concomitant]
     Indication: INDUCTION OF ANAESTHESIA
     Route: 042
  16. FENTANYL [Concomitant]
     Indication: INDUCTION OF ANAESTHESIA
  17. LIDOCAINE [Concomitant]
     Indication: ENDOTRACHEAL INTUBATION
     Route: 042
  18. NITROUS OXIDE [Concomitant]
     Indication: MAINTENANCE OF ANAESTHESIA
     Dosage: 50%
  19. OXYGEN [Concomitant]
     Indication: MAINTENANCE OF ANAESTHESIA
     Dosage: 50 %
  20. EPHEDRINE [Concomitant]
     Indication: BLOOD PRESSURE DECREASED
  21. DOPAMINE [Concomitant]
     Indication: BLOOD PRESSURE DECREASED
     Route: 042
  22. O2 [Concomitant]
     Indication: PRODUCT USED FOR UNKNOWN INDICATION

REACTIONS (1)
  - Polyuria [Recovered/Resolved]
